FAERS Safety Report 14770039 (Version 8)
Quarter: 2019Q2

REPORT INFORMATION
  Report Type: Spontaneous
  Country: GR (occurrence: GR)
  Receive Date: 20180417
  Receipt Date: 20190606
  Transmission Date: 20190711
  Serious: Yes (Death, Life-Threatening, Other)
  Sender: FDA-Public Use
  Company Number: GR-BAUSCH-BL-2018-009783

PATIENT
  Age: 25 Year
  Sex: Male

DRUGS (18)
  1. QUETIAPINE. [Suspect]
     Active Substance: QUETIAPINE
     Indication: DEPRESSION
  2. DESLORATADINE. [Suspect]
     Active Substance: DESLORATADINE
     Indication: BIPOLAR DISORDER
     Route: 065
  3. CITALOPRAM [Suspect]
     Active Substance: CITALOPRAM HYDROBROMIDE
     Indication: DEPRESSION
  4. MOCLOBEMIDE [Suspect]
     Active Substance: MOCLOBEMIDE
     Indication: BIPOLAR DISORDER
  5. SEROPRAM (CITALOPRAM HYDROBROMIDE) [Suspect]
     Active Substance: CITALOPRAM HYDROBROMIDE
     Indication: DEPRESSION
     Route: 065
  6. MOCLOBEMIDE [Suspect]
     Active Substance: MOCLOBEMIDE
     Indication: DEPRESSION
     Route: 065
  7. PROPRANOLOL [Suspect]
     Active Substance: PROPRANOLOL HYDROCHLORIDE
     Indication: BIPOLAR DISORDER
     Route: 065
  8. SEROPRAM (CITALOPRAM HYDROBROMIDE) [Suspect]
     Active Substance: CITALOPRAM HYDROBROMIDE
     Indication: BIPOLAR DISORDER
  9. PERINDOPRIL [Suspect]
     Active Substance: PERINDOPRIL
     Indication: BIPOLAR DISORDER
     Route: 065
  10. VALPROIC ACID. [Suspect]
     Active Substance: VALPROIC ACID
     Indication: DEPRESSION
  11. QUETIAPINE. [Suspect]
     Active Substance: QUETIAPINE
     Indication: BIPOLAR DISORDER
     Route: 048
  12. ALPRAZOLAM. [Suspect]
     Active Substance: ALPRAZOLAM
     Indication: DEPRESSION
  13. CITALOPRAM [Suspect]
     Active Substance: CITALOPRAM HYDROBROMIDE
     Indication: BIPOLAR DISORDER
     Route: 065
  14. FLUOXETINE [Suspect]
     Active Substance: FLUOXETINE HYDROCHLORIDE
     Indication: BIPOLAR DISORDER
     Route: 065
  15. FLUOXETINE [Suspect]
     Active Substance: FLUOXETINE HYDROCHLORIDE
     Indication: DEPRESSION
  16. FLURBIPROFEN. [Suspect]
     Active Substance: FLURBIPROFEN
     Indication: BIPOLAR DISORDER
     Route: 065
  17. ALPRAZOLAM. [Suspect]
     Active Substance: ALPRAZOLAM
     Indication: BIPOLAR DISORDER
     Route: 048
  18. VALPROIC ACID. [Suspect]
     Active Substance: VALPROIC ACID
     Indication: BIPOLAR DISORDER
     Route: 048

REACTIONS (14)
  - Electrocardiogram QT prolonged [Fatal]
  - Ischaemic cerebral infarction [Fatal]
  - Prescription drug used without a prescription [Fatal]
  - Off label use [Unknown]
  - Sudden death [Fatal]
  - Infarction [Fatal]
  - Toxicity to various agents [Fatal]
  - Hypertrophic cardiomyopathy [Fatal]
  - Arteriosclerosis coronary artery [Fatal]
  - Drug interaction [Fatal]
  - Arrhythmia [Fatal]
  - Contraindicated product administered [Fatal]
  - Intentional overdose [Fatal]
  - Product use issue [Unknown]
